FAERS Safety Report 5213014-9 (Version None)
Quarter: 2007Q1

REPORT INFORMATION
  Report Type: 
  Country: None (occurrence: None)
  Receive Date: 20070119
  Receipt Date: 20070108
  Transmission Date: 20070707
  Serious: Yes (Hospitalization)
  Sender: FDA-Public Use
  Company Number: 2007CG00046

PATIENT
  Age: 62 Year
  Sex: Female
  Weight: 78.5 kg

DRUGS (2)
  1. ARIMIDEX [Suspect]
     Indication: BREAST CANCER
     Route: 048
     Dates: start: 20030101, end: 20051201
  2. TAMOXIFEN CITRATE [Suspect]
     Indication: BREAST CANCER
     Route: 048
     Dates: start: 20000101, end: 20030101

REACTIONS (3)
  - CONGESTIVE CARDIOMYOPATHY [None]
  - CORONARY ARTERY STENOSIS [None]
  - OSTEOPOROSIS [None]
